FAERS Safety Report 8935202 (Version 1)
Quarter: 2012Q4

REPORT INFORMATION
  Report Type: 
  Country: US (occurrence: US)
  Receive Date: 20121129
  Receipt Date: 20121129
  Transmission Date: 20130627
  Serious: No
  Sender: FDA-Public Use
  Company Number: US-ASTRAZENECA-2012SE86999

PATIENT
  Age: 70 Year
  Sex: Female

DRUGS (3)
  1. VIMOVO [Suspect]
     Indication: ARTHRALGIA
     Route: 048
  2. ASPIRIN [Concomitant]
  3. SYNTHYROID [Concomitant]

REACTIONS (2)
  - Drug eruption [Recovering/Resolving]
  - Off label use [Unknown]
